FAERS Safety Report 23773464 (Version 2)
Quarter: 2024Q2

REPORT INFORMATION
  Report Type: Report from Study
  Country: US (occurrence: US)
  Receive Date: 20240423
  Receipt Date: 20240513
  Transmission Date: 20240716
  Serious: Yes (Hospitalization)
  Sender: FDA-Public Use
  Company Number: US-TEVA-VS-3185455

PATIENT
  Age: 68 Year
  Sex: Male

DRUGS (4)
  1. MINOCYCLINE [Suspect]
     Active Substance: MINOCYCLINE HYDROCHLORIDE
     Indication: Pneumonia
     Dosage: RECEIVED OVER 1 HOUR
     Route: 065
  2. AMPICILLIN SODIUM\SULBACTAM SODIUM [Suspect]
     Active Substance: AMPICILLIN SODIUM\SULBACTAM SODIUM
     Indication: Pneumonia
     Dosage: RECEIVED PROLONGED INFUSION OVER 4 HOURS
     Route: 065
  3. POLYMYXIN B [Suspect]
     Active Substance: POLYMYXIN B
     Indication: Pneumonia
     Dosage: RECEIVED AS LOADING DOSE
     Route: 065
  4. POLYMYXIN B [Suspect]
     Active Substance: POLYMYXIN B
     Indication: Pneumonia
     Dosage: RECEIVED OVER A 2 HOURS
     Route: 065

REACTIONS (2)
  - Drug ineffective [Unknown]
  - Acute kidney injury [Unknown]
